FAERS Safety Report 6470775-9 (Version None)
Quarter: 2009Q4

REPORT INFORMATION
  Report Type: 
  Country: None (occurrence: None)
  Receive Date: 20091203
  Receipt Date: 20091127
  Transmission Date: 20100525
  Serious: Yes (Death, Hospitalization)
  Sender: FDA-Public Use
  Company Number: B0609108A

PATIENT
  Sex: Female

DRUGS (12)
  1. AUGMENTIN '125' [Suspect]
     Indication: ERYSIPELAS
     Dosage: 1G PER DAY
     Route: 048
     Dates: start: 20090804, end: 20091007
  2. NEXIUM [Suspect]
     Indication: GASTRITIS
     Dosage: 40MG PER DAY
     Route: 048
     Dates: start: 20080801, end: 20091027
  3. PREVISCAN [Suspect]
     Indication: ATRIAL FIBRILLATION
     Dosage: 5MG PER DAY
     Route: 048
     Dates: start: 19930101, end: 20091027
  4. TRIATEC [Suspect]
     Indication: HYPERTENSION
     Dosage: 7.5MG PER DAY
     Route: 048
     Dates: start: 20090403, end: 20091007
  5. LEVOTHYROXINE SODIUM [Suspect]
     Indication: HYPOTHYROIDISM
     Dosage: 50MCG PER DAY
     Route: 048
     Dates: start: 19930101, end: 20091027
  6. CORDARONE [Suspect]
     Indication: ATRIAL FIBRILLATION
     Dosage: 200MG SEE DOSAGE TEXT
     Route: 048
     Dates: start: 19941101, end: 20091027
  7. LASILIX [Suspect]
     Dosage: 40MG TWICE PER DAY
     Route: 065
     Dates: start: 20080101, end: 20091007
  8. KALEORID LP [Suspect]
     Dosage: 600MG PER DAY
     Route: 048
     Dates: start: 20080101, end: 20091007
  9. SPECIAFOLDINE [Suspect]
     Dosage: 1UNIT PER DAY
     Route: 048
     Dates: end: 20091007
  10. DAFALGAN [Suspect]
     Route: 048
     Dates: start: 19900101, end: 20091007
  11. TEMESTA [Suspect]
     Indication: ANXIETY
     Dosage: 1UNIT PER DAY
     Route: 048
     Dates: end: 20091007
  12. LANTUS [Suspect]
     Dosage: 22IU PER DAY
     Route: 065
     Dates: start: 20040101, end: 20091024

REACTIONS (9)
  - CARDIAC FAILURE [None]
  - CLOSTRIDIUM DIFFICILE COLITIS [None]
  - DEHYDRATION [None]
  - DIARRHOEA [None]
  - HYPONATRAEMIA [None]
  - NAUSEA [None]
  - OFF LABEL USE [None]
  - RENAL FAILURE ACUTE [None]
  - VOMITING [None]
